FAERS Safety Report 6986618-0 (Version None)
Quarter: 2010Q3

REPORT INFORMATION
  Report Type: 
  Country: None (occurrence: None)
  Receive Date: 20100827
  Receipt Date: 20100309
  Transmission Date: 20110219
  Serious: Yes (Other)
  Sender: FDA-Public Use
  Company Number: AMAG201000173

PATIENT
  Age: 83 Year
  Sex: Female
  Weight: 71.7 kg

DRUGS (19)
  1. FERAHEME [Suspect]
     Indication: IRON DEFICIENCY ANAEMIA
     Dosage: 510 MG, SINGLE, INTRAVENOUS
     Route: 042
     Dates: start: 20100217, end: 20100217
  2. FERAHEME [Suspect]
     Indication: IRON DEFICIENCY ANAEMIA
     Dosage: 510 MG, SINGLE, INTRAVENOUS
     Route: 042
     Dates: start: 20100318, end: 20100318
  3. ARICEPT [Concomitant]
  4. IMDUR [Concomitant]
  5. INVEGA [Concomitant]
  6. ASPIRIN [Concomitant]
  7. COUMADIN [Concomitant]
  8. BUMEX [Concomitant]
  9. EFFEXOR [Concomitant]
  10. FOSAMAX [Concomitant]
  11. MOM (MAGNESIUM HYDROXIDE) [Concomitant]
  12. NITRO-DUR [Concomitant]
  13. NOVOLOG [Concomitant]
  14. OMEPRAZOLE [Concomitant]
  15. POTASSIUM (POTASSIUM GLUCONATE) [Concomitant]
  16. RESTASIS (CICLOSPORIN) [Concomitant]
  17. TOPROL-XL [Concomitant]
  18. TUMS (CALCIUM CARBONATE, MAGNESIUM CARBONATE, MAGNESIUM TRISILICATE) [Concomitant]
  19. VITAMIN D (ERGOCALCIFEROL0 [Concomitant]

REACTIONS (4)
  - DISORIENTATION [None]
  - HYPOTENSION [None]
  - OXYGEN SATURATION [None]
  - VOMITING [None]
